FAERS Safety Report 7496759-X (Version None)
Quarter: 2011Q2

REPORT INFORMATION
  Report Type: 
  Country: None (occurrence: None)
  Receive Date: 20110523
  Receipt Date: 20110519
  Transmission Date: 20111010
  Serious: Yes (Death)
  Sender: FDA-Public Use
  Company Number: B0715338A

PATIENT
  Sex: Female

DRUGS (3)
  1. BECLOMETHASONE DIPROPIONATE [Suspect]
     Route: 065
  2. BUPROPION HYDROCHLORIDE [Suspect]
     Dosage: 150MG PER DAY
     Route: 065
  3. ATROVENT [Suspect]
     Route: 065

REACTIONS (2)
  - INTENTIONAL OVERDOSE [None]
  - COMPLETED SUICIDE [None]
